FAERS Safety Report 5060682-0 (Version None)
Quarter: 2006Q3

REPORT INFORMATION
  Report Type: 
  Country: None (occurrence: None)
  Receive Date: 20060720
  Receipt Date: 20060720
  Transmission Date: 20061208
  Serious: Yes (Hospitalization)
  Sender: FDA-Public Use
  Company Number: None

PATIENT
  Sex: Male

DRUGS (8)
  1. CAPECITABINE PO BID D1- D28 [Suspect]
     Indication: COLON CANCER METASTATIC
     Dosage: 750 MG/M2 BID D1-D28 PO
     Route: 048
     Dates: start: 20060522, end: 20060623
  2. BEVACIZUMAB IV D1,D8 [Suspect]
     Dosage: 5 MG/KG D1, D16 Q14DAYS IV
     Route: 042
     Dates: start: 20060522
  3. BEVACIZUMAB IV D1,D8 [Suspect]
     Dosage: 5 MG/KG D1, D16 Q14DAYS IV
     Route: 042
     Dates: start: 20060605
  4. BEVACIZUMAB IV D1,D8 [Suspect]
     Dosage: 5 MG/KG D1, D16 Q14DAYS IV
     Route: 042
     Dates: start: 20060619
  5. OXALIPLATIN IV D1,D15 85MG/M2 [Suspect]
     Dosage: 85MG/M2  IV DI, D15
     Route: 042
  6. LANSOPRAZOL [Concomitant]
  7. PROCHLORPERAZINE TAB [Concomitant]
  8. LOVENOX [Concomitant]

REACTIONS (9)
  - ABDOMINAL PAIN [None]
  - CHILLS [None]
  - DEHYDRATION [None]
  - DIARRHOEA [None]
  - FEBRILE NEUTROPENIA [None]
  - ILEITIS [None]
  - MEGACOLON [None]
  - PYREXIA [None]
  - VOMITING [None]
